FAERS Safety Report 5704784-1 (Version None)
Quarter: 2008Q2

REPORT INFORMATION
  Report Type: 
  Country: None (occurrence: None)
  Receive Date: 20080414
  Receipt Date: 20080410
  Transmission Date: 20081010
  Serious: Yes (Hospitalization)
  Sender: FDA-Public Use
  Company Number: CH-WYE-G01383508

PATIENT
  Age: 52 Year
  Sex: Male
  Weight: 75 kg

DRUGS (6)
  1. TEMSIROLIMUS [Suspect]
     Indication: METASTATIC RENAL CELL CARCINOMA
     Route: 042
     Dates: start: 20080320, end: 20080327
  2. RISPERDAL [Concomitant]
     Route: 048
  3. REMERON [Concomitant]
     Route: 048
  4. AKINETON [Concomitant]
     Route: 048
  5. SEROQUEL [Concomitant]
     Route: 048
  6. QUILONORM [Concomitant]
     Route: 048

REACTIONS (2)
  - C-REACTIVE PROTEIN INCREASED [None]
  - PYREXIA [None]
